FAERS Safety Report 9826588 (Version 1)
Quarter: 2014Q1

REPORT INFORMATION
  Report Type: Spontaneous
  Country: US (occurrence: US)
  Receive Date: 20140117
  Receipt Date: 20140117
  Transmission Date: 20141002
  Serious: No
  Sender: FDA-Public Use
  Company Number: US-BIOGENIDEC-2014BI000475

PATIENT
  Age: 35 Year
  Sex: Female

DRUGS (3)
  1. TECFIDERA [Suspect]
     Indication: MULTIPLE SCLEROSIS
     Route: 048
     Dates: start: 20131228
  2. SOLU-MEDROL [Concomitant]
     Route: 042
     Dates: start: 2013
  3. PREDNISONE [Concomitant]
     Route: 048
     Dates: start: 2013

REACTIONS (1)
  - Palpitations [Not Recovered/Not Resolved]
